FAERS Safety Report 4507152-3 (Version None)
Quarter: 2004Q4

REPORT INFORMATION
  Report Type: 
  Country: None (occurrence: None)
  Receive Date: 20041025
  Receipt Date: 20040520
  Transmission Date: 20050328
  Serious: Yes (Other)
  Sender: FDA-Public Use
  Company Number: US-JNJFOC-20040504803

PATIENT
  Age: 63 Year
  Sex: Female
  Weight: 88.905 kg

DRUGS (11)
  1. INFLIXIMAB (INFLIXIMAB, RECOMBINANT) LYOPHILIZED POWDER [Suspect]
     Indication: RHEUMATOID ARTHRITIS
     Dosage: 4 DOSE(S), 1 IN 8 WEEK, INTRAVENOUS
     Route: 042
     Dates: start: 20010301
  2. ASPIRIN [Concomitant]
  3. CARDIZEM [Concomitant]
  4. DARVOCET-N 100 [Concomitant]
  5. EVISTA [Concomitant]
  6. FOLIC ACID [Concomitant]
  7. METHOTREXATE [Concomitant]
  8. MULTIVITAMIN (MULTIVITAMINS) [Concomitant]
  9. PAXIL [Concomitant]
  10. SYNTHROID [Concomitant]
  11. FEMARA [Concomitant]

REACTIONS (1)
  - BREAST CANCER METASTATIC [None]
